FAERS Safety Report 5108068-4 (Version None)
Quarter: 2006Q3

REPORT INFORMATION
  Report Type: 
  Country: None (occurrence: None)
  Receive Date: 20060919
  Receipt Date: 20060726
  Transmission Date: 20061208
  Serious: Yes (Other)
  Sender: FDA-Public Use
  Company Number: JP-MERCK-0608USA02423

PATIENT
  Age: 40 Year
  Sex: Male
  Weight: 65 kg

DRUGS (3)
  1. PROPECIA [Suspect]
     Indication: MALE PATTERN BALDNESS
     Route: 048
     Dates: start: 20060630, end: 20060713
  2. ACINON [Suspect]
     Indication: REFLUX OESOPHAGITIS
     Route: 048
     Dates: start: 20001122, end: 20060901
  3. HALCION [Suspect]
     Indication: INSOMNIA
     Route: 048
     Dates: start: 19990331, end: 20060901

REACTIONS (1)
  - BLOOD TRIGLYCERIDES INCREASED [None]
